FAERS Safety Report 8776349 (Version 2)
Quarter: 2012Q4

REPORT INFORMATION
  Report Type: 
  Country: JP (occurrence: JP)
  Receive Date: 20120910
  Receipt Date: 20120925
  Transmission Date: 20130627
  Serious: Yes (Other)
  Sender: FDA-Public Use
  Company Number: JP-BAYER-2012-093571

PATIENT
  Age: 76 Year
  Sex: Female

DRUGS (6)
  1. ACETYLSALICYLIC ACID (} 100 MG) [Suspect]
     Route: 048
  2. NICARDIPINE [Concomitant]
  3. SIMVASTATIN [Concomitant]
  4. MOSAPRIDE [Concomitant]
  5. ISOSORBIDE [Concomitant]
  6. PITAVASTATIN [Concomitant]

REACTIONS (1)
  - Colitis microscopic [Recovered/Resolved]
